FAERS Safety Report 17956266 (Version 1)
Quarter: 2020Q2

REPORT INFORMATION
  Report Type: Report from Study
  Country: CA (occurrence: CA)
  Receive Date: 20200629
  Receipt Date: 20200629
  Transmission Date: 20200714
  Serious: Yes (Other)
  Sender: FDA-Public Use
  Company Number: CA-BRISTOL-MYERS SQUIBB COMPANY-BMS-2019-118546

PATIENT
  Age: 18 Year
  Sex: Female
  Weight: 90.3 kg

DRUGS (20)
  1. NAPROSYN [Concomitant]
     Active Substance: NAPROXEN
     Dosage: 500 MILLIGRAM, BID PRN
     Route: 048
     Dates: start: 20200425
  2. CITALOPRAM [Concomitant]
     Active Substance: CITALOPRAM HYDROBROMIDE
     Indication: PRODUCT USED FOR UNKNOWN INDICATION
     Dosage: UNK
     Route: 065
  3. VITAMIN D [ERGOCALCIFEROL] [Concomitant]
     Active Substance: ERGOCALCIFEROL
     Indication: PRODUCT USED FOR UNKNOWN INDICATION
     Dosage: UNK
     Route: 065
  4. MAGNESIUM HYDROXIDE. [Concomitant]
     Active Substance: MAGNESIUM HYDROXIDE
     Indication: PROPHYLAXIS
     Dosage: 1 DOSAGE FORM, BID PRN
     Route: 048
     Dates: start: 20200425
  5. NAPROSYN [Concomitant]
     Active Substance: NAPROXEN
     Indication: PAIN
     Dosage: 375 MILLIGRAM, BID
     Route: 048
     Dates: start: 20141112
  6. HEMCORT HC [Concomitant]
     Indication: HAEMORRHOIDS
     Dosage: 0.5 PERCENT
     Route: 065
     Dates: start: 20200425
  7. CERTOLIZUMAB [Concomitant]
     Active Substance: CERTOLIZUMAB
     Indication: JUVENILE IDIOPATHIC ARTHRITIS
     Dosage: 200 MILLIGRAM, Q2WK
     Route: 058
     Dates: start: 20191101
  8. OXYTOCIN. [Concomitant]
     Active Substance: OXYTOCIN
     Indication: HAEMORRHAGE PROPHYLAXIS
     Dosage: 100 MILLILITER, Q8H
     Route: 042
     Dates: start: 20200425, end: 20200425
  9. ABATACEPT [Suspect]
     Active Substance: ABATACEPT
     Dosage: 750 MILLIGRAM, Q4WK
     Route: 042
     Dates: start: 20120215, end: 20191003
  10. BUPIVICAINE [Concomitant]
     Active Substance: BUPIVACAINE
     Indication: ANALGESIC THERAPY
     Dosage: 100 MILLILITER EVERY 1 HOUR FOR 9 HOURS
     Route: 065
     Dates: start: 20200425, end: 20200425
  11. MMR [Concomitant]
     Active Substance: MEASLES-MUMPS-RUBELLA VIRUS VACCINE
     Indication: IMMUNISATION
     Dosage: 0.5 MILLILITER
     Route: 058
     Dates: start: 20200425, end: 20200425
  12. ABATACEPT [Suspect]
     Active Substance: ABATACEPT
     Indication: JUVENILE IDIOPATHIC ARTHRITIS
     Dosage: 500 MILLIGRAM, Q4WK
     Route: 042
     Dates: start: 20110829, end: 20120214
  13. DOCUSATE SODIUM. [Concomitant]
     Active Substance: DOCUSATE SODIUM
     Indication: CONSTIPATION
     Dosage: 100 MILLIGRAM, BID
     Route: 064
     Dates: start: 20200425
  14. LIDOCAINE. [Concomitant]
     Active Substance: LIDOCAINE
     Indication: HYPOAESTHESIA
     Dosage: 5 PERCENT, 3-4 PER DAY PRN
     Route: 065
     Dates: start: 20200425
  15. MAGNESIUM SULFATE. [Concomitant]
     Active Substance: MAGNESIUM SULFATE
     Indication: PRE-ECLAMPSIA
     Dosage: 50 PERCENT 3-4X DAILY PRN
     Route: 065
     Dates: start: 20200425
  16. CALCIUM [Concomitant]
     Active Substance: CALCIUM
     Indication: BLOOD CALCIUM DECREASED
     Dosage: 500 MILLIGRAM, QD
     Route: 048
     Dates: start: 20130206
  17. ACETAMINOPHEN. [Concomitant]
     Active Substance: ACETAMINOPHEN
     Indication: PAIN
     Dosage: 975 MILLIGRAM, Q6H FOR 24 H POSTPARTUM THEN Q6H PRN
     Route: 048
     Dates: start: 20200425
  18. ONDANSETRON [Concomitant]
     Active Substance: ONDANSETRON
     Indication: VOMITING
     Dosage: 4 MILLIGRAM, Q8H PRN
     Route: 042
     Dates: start: 20200425
  19. MORPHINE [Concomitant]
     Active Substance: MORPHINE
     Indication: PAIN
     Dosage: 1 DOSAGE FORM
     Route: 048
     Dates: start: 20200425
  20. IMURAN [Concomitant]
     Active Substance: AZATHIOPRINE
     Indication: IMMUNOSUPPRESSION
     Dosage: 100 MILLIGRAM, QD
     Route: 048
     Dates: start: 20131218

REACTIONS (3)
  - Chlamydial infection [Unknown]
  - Maternal exposure during pregnancy [Recovered/Resolved]
  - Live birth [Unknown]

NARRATIVE: CASE EVENT DATE: 201912
